FAERS Safety Report 17183924 (Version 3)
Quarter: 2024Q2

REPORT INFORMATION
  Report Type: Spontaneous
  Country: IT (occurrence: IT)
  Receive Date: 20191220
  Receipt Date: 20240419
  Transmission Date: 20240716
  Serious: Yes (Other)
  Sender: FDA-Public Use
  Company Number: IT-KRKA-IT2019K13391LIT

PATIENT
  Age: 79 Year
  Sex: Male

DRUGS (4)
  1. PREGABALIN [Suspect]
     Active Substance: PREGABALIN
     Indication: Pain in extremity
     Dosage: UNK
     Route: 065
  2. PREGABALIN [Suspect]
     Active Substance: PREGABALIN
     Indication: Pain management
     Dosage: UP TO 300 MG/DAY
     Route: 065
  3. PREGABALIN [Suspect]
     Active Substance: PREGABALIN
     Indication: Peripheral nerve lesion
     Dosage: 300 MILLIGRAM, QD
     Route: 048
  4. PREGABALIN [Suspect]
     Active Substance: PREGABALIN
     Indication: Pain

REACTIONS (6)
  - Dizziness [Unknown]
  - Nausea [Unknown]
  - Constipation [Unknown]
  - Drug ineffective [Unknown]
  - Drug intolerance [Unknown]
  - Inadequate analgesia [Unknown]
